FAERS Safety Report 9815142 (Version 2)
Quarter: 2014Q1

REPORT INFORMATION
  Report Type: Spontaneous
  Country: AR (occurrence: AR)
  Receive Date: 20140114
  Receipt Date: 20140130
  Transmission Date: 20141002
  Serious: Yes (Hospitalization, Other)
  Sender: FDA-Public Use
  Company Number: AR-AMGEN-ARGSP2014002218

PATIENT
  Age: 57 Year
  Sex: Female

DRUGS (7)
  1. ENBREL [Suspect]
     Indication: RHEUMATOID ARTHRITIS
     Dosage: 50 MG, WEEKLY
     Route: 065
     Dates: start: 20050702
  2. METHOTREXATE [Concomitant]
     Dosage: 20 MG, WEEKLY
  3. OMEPRAZOLE [Concomitant]
     Dosage: 20 MG, 1X/DAY
  4. ROSUVASTATIN [Concomitant]
     Dosage: 10 MG, 1X/DAY
  5. TRYPTANOL                          /00002202/ [Concomitant]
     Dosage: 25 MG, 1X/DAY
  6. LOSARTAN POTASSIUM [Concomitant]
     Dosage: 50 MG, 1X/DAY
  7. CARVEDILOL [Concomitant]
     Dosage: 12.5 MG, 1X/DAY

REACTIONS (5)
  - Pain in extremity [Recovering/Resolving]
  - Arthropathy [Recovered/Resolved]
  - Red blood cell sedimentation rate increased [Recovering/Resolving]
  - Impaired healing [Recovered/Resolved]
  - Infection [Recovered/Resolved]
